FAERS Safety Report 5546053-9 (Version None)
Quarter: 2007Q4

REPORT INFORMATION
  Report Type: 
  Country: None (occurrence: None)
  Receive Date: 20071211
  Receipt Date: 20070831
  Transmission Date: 20080405
  Serious: No
  Sender: FDA-Public Use
  Company Number: US-BRISTOL-MYERS SQUIBB COMPANY-13901335

PATIENT
  Age: 36 Year
  Sex: Female
  Weight: 57 kg

DRUGS (5)
  1. ABILIFY [Suspect]
     Dates: start: 20070601
  2. EMSAM [Suspect]
     Dates: start: 20070501
  3. PROZAC [Concomitant]
  4. TRILEPTAL [Concomitant]
  5. ATIVAN [Concomitant]

REACTIONS (1)
  - RASH [None]
